FAERS Safety Report 5921839-7 (Version None)
Quarter: 2008Q4

REPORT INFORMATION
  Report Type: 
  Country: None (occurrence: None)
  Receive Date: 20081016
  Receipt Date: 20081016
  Transmission Date: 20090506
  Serious: Yes (Other)
  Sender: FDA-Public Use
  Company Number: None

PATIENT
  Age: 52 Year
  Sex: Female
  Weight: 83.9154 kg

DRUGS (2)
  1. BACTRIM DS [Suspect]
     Indication: EAR INFECTION
     Dosage: ONE TABELT 2X DAILY PO
     Route: 048
     Dates: start: 20081006, end: 20081013
  2. BACTRIM DS [Suspect]
     Indication: SINUSITIS
     Dosage: ONE TABELT 2X DAILY PO
     Route: 048
     Dates: start: 20081006, end: 20081013

REACTIONS (8)
  - ABASIA [None]
  - ARTHRALGIA [None]
  - DRUG INEFFECTIVE [None]
  - DYSSTASIA [None]
  - MUSCLE SWELLING [None]
  - MUSCULOSKELETAL STIFFNESS [None]
  - MYALGIA [None]
  - PAIN IN EXTREMITY [None]
